FAERS Safety Report 8540938-7 (Version None)
Quarter: 2012Q3

REPORT INFORMATION
  Report Type: 
  Country: None (occurrence: None)
  Receive Date: 20120726
  Receipt Date: 20110927
  Transmission Date: 20120928
  Serious: No
  Sender: FDA-Public Use
  Company Number: US-ASTRAZENECA-2011SE48012

PATIENT
  Age: 49 Year
  Sex: Male
  Weight: 76.7 kg

DRUGS (3)
  1. SEROQUEL [Suspect]
     Indication: INSOMNIA
     Route: 048
     Dates: start: 20060101, end: 20110808
  2. SEROQUEL [Suspect]
     Indication: DECREASED APPETITE
     Route: 048
     Dates: start: 20060101, end: 20110808
  3. SEROQUEL [Suspect]
     Indication: NERVOUSNESS
     Route: 048
     Dates: start: 20060101, end: 20110808

REACTIONS (6)
  - INSOMNIA [None]
  - DRUG WITHDRAWAL SYNDROME [None]
  - DRUG DOSE OMISSION [None]
  - OFF LABEL USE [None]
  - DECREASED APPETITE [None]
  - INTERVERTEBRAL DISC PROTRUSION [None]
